FAERS Safety Report 7292332-7 (Version None)
Quarter: 2011Q1

REPORT INFORMATION
  Report Type: 
  Country: None (occurrence: None)
  Receive Date: 20110215
  Receipt Date: 20110201
  Transmission Date: 20110831
  Serious: Yes (Death)
  Sender: FDA-Public Use
  Company Number: US-CELGENEUS-163-21880-11020273

PATIENT
  Sex: Female

DRUGS (11)
  1. ACIDOPHILUS [Concomitant]
     Route: 065
  2. REVLIMID [Suspect]
     Route: 048
     Dates: start: 20101001, end: 20100101
  3. LUNESTA [Concomitant]
     Route: 065
  4. ROZEREM [Concomitant]
     Route: 065
  5. REVLIMID [Suspect]
     Route: 048
     Dates: start: 20090801
  6. REVLIMID [Suspect]
     Route: 048
     Dates: start: 20090301
  7. ASMANEX TWISTHALER [Concomitant]
     Route: 065
  8. KLOR-CON [Concomitant]
     Route: 065
  9. MULTI-VITAMINS [Concomitant]
     Route: 065
  10. REVLIMID [Suspect]
     Indication: MULTIPLE MYELOMA
     Route: 048
     Dates: start: 20081101
  11. VELCADE [Concomitant]
     Route: 065

REACTIONS (1)
  - DEATH [None]
